FAERS Safety Report 24294299 (Version 2)
Quarter: 2025Q3

REPORT INFORMATION
  Report Type: Spontaneous
  Country: US (occurrence: US)
  Receive Date: 20240906
  Receipt Date: 20250905
  Transmission Date: 20251020
  Serious: No
  Sender: DOMPE FARMACEUTICI
  Company Number: US-FARMAPROD-202406-2378

PATIENT
  Sex: Female
  Weight: 63.5 kg

DRUGS (14)
  1. OXERVATE [Suspect]
     Active Substance: CENEGERMIN-BKBJ
     Indication: Neurotrophic keratopathy
     Route: 047
     Dates: start: 20240516, end: 20240713
  2. OXERVATE [Suspect]
     Active Substance: CENEGERMIN-BKBJ
  3. OXERVATE [Suspect]
     Active Substance: CENEGERMIN-BKBJ
  4. VENLAFAXINE HCL [Concomitant]
     Active Substance: VENLAFAXINE HYDROCHLORIDE
  5. VITAMIN C [Concomitant]
     Active Substance: ASCORBIC ACID
  6. GLUCOSAMINE HYDROCHLORIDE\SODIUM CHONDROITIN SULFATE [Concomitant]
     Active Substance: GLUCOSAMINE HYDROCHLORIDE\SODIUM CHONDROITIN SULFATE
  7. ASPIRIN [Concomitant]
     Active Substance: ASPIRIN
  8. ESTRADIOL [Concomitant]
     Active Substance: ESTRADIOL
  9. EZETIMIBE [Concomitant]
     Active Substance: EZETIMIBE
  10. LEVOTHYROXINE SODIUM [Concomitant]
     Active Substance: LEVOTHYROXINE SODIUM
  11. ACYCLOVIR [Concomitant]
     Active Substance: ACYCLOVIR
  12. CLONAZEPAM [Concomitant]
     Active Substance: CLONAZEPAM
  13. ATORVASTATIN CALCIUM [Concomitant]
     Active Substance: ATORVASTATIN CALCIUM
  14. BUPROPION [Concomitant]
     Active Substance: BUPROPION

REACTIONS (5)
  - Photophobia [Unknown]
  - Lacrimation increased [Not Recovered/Not Resolved]
  - Eye pain [Not Recovered/Not Resolved]
  - Therapy partial responder [Unknown]
  - Ocular discomfort [Not Recovered/Not Resolved]
